FAERS Safety Report 7014352-X (Version None)
Quarter: 2010Q3

REPORT INFORMATION
  Report Type: 
  Country: None (occurrence: None)
  Receive Date: 20100924
  Receipt Date: 20100924
  Transmission Date: 20110219
  Serious: Yes (Hospitalization)
  Sender: FDA-Public Use
  Company Number: None

PATIENT
  Age: 63 Year
  Sex: Female

DRUGS (1)
  1. CLOPIDOGREL [Suspect]
     Dosage: 75 MG DAILY PO
     Route: 048
     Dates: start: 20091013, end: 20091019

REACTIONS (1)
  - DRUG HYPERSENSITIVITY [None]
